FAERS Safety Report 7352487-2 (Version None)
Quarter: 2011Q1

REPORT INFORMATION
  Report Type: 
  Country: None (occurrence: None)
  Receive Date: 20110315
  Receipt Date: 20110309
  Transmission Date: 20110831
  Serious: Yes (Other)
  Sender: FDA-Public Use
  Company Number: JP-EISAI INC-E2090-01375-SPO-JP

PATIENT
  Sex: Female

DRUGS (3)
  1. EXCEGRAN [Suspect]
     Dosage: (SWITCHED TO GENERIC) 100 MG
     Route: 048
     Dates: start: 20101013, end: 20101021
  2. MUCOSTA [Concomitant]
     Dosage: 200 MG
     Route: 048
     Dates: start: 20100922, end: 20101021
  3. EXCEGRAN [Suspect]
     Indication: CONVULSION PROPHYLAXIS
     Dosage: 100 MG
     Route: 048
     Dates: start: 20100922, end: 20101012

REACTIONS (1)
  - NEUTROPENIA [None]
